FAERS Safety Report 6468717-5 (Version None)
Quarter: 2009Q4

REPORT INFORMATION
  Report Type: 
  Country: None (occurrence: None)
  Receive Date: 20091203
  Receipt Date: 20091124
  Transmission Date: 20100525
  Serious: Yes (Hospitalization)
  Sender: FDA-Public Use
  Company Number: DE-AMGEN-UK376387

PATIENT
  Sex: Female
  Weight: 65 kg

DRUGS (6)
  1. NPLATE [Suspect]
     Indication: IDIOPATHIC THROMBOCYTOPENIC PURPURA
     Route: 058
     Dates: start: 20090508, end: 20091030
  2. PREDNISONE [Concomitant]
     Route: 048
  3. FRAGMIN [Concomitant]
     Route: 058
  4. FENTANYL-100 [Concomitant]
     Route: 061
  5. PANTOZOL [Concomitant]
     Route: 048
  6. UNSPECIFIED MEDICATION [Concomitant]
     Route: 048

REACTIONS (3)
  - PLATELET COUNT INCREASED [None]
  - PULMONARY EMBOLISM [None]
  - THROMBOSIS [None]
